FAERS Safety Report 25849968 (Version 1)
Quarter: 2025Q3

REPORT INFORMATION
  Report Type: Spontaneous
  Country: US (occurrence: US)
  Receive Date: 20250926
  Receipt Date: 20250926
  Transmission Date: 20251021
  Serious: No
  Sender: DIFGEN PHARMACEUTICALS LLC
  Company Number: US-Difgen-012153

PATIENT

DRUGS (1)
  1. BUPRENORPHINE [Suspect]
     Active Substance: BUPRENORPHINE
     Indication: Arthralgia
     Route: 062

REACTIONS (6)
  - Product adhesion issue [Unknown]
  - Product substitution issue [Unknown]
  - Application site erythema [Not Recovered/Not Resolved]
  - Urticaria [Unknown]
  - Application site pruritus [Unknown]
  - Application site burn [Unknown]
